FAERS Safety Report 7832029-5 (Version None)
Quarter: 2011Q4

REPORT INFORMATION
  Report Type: 
  Country: None (occurrence: None)
  Receive Date: 20111021
  Receipt Date: 20111012
  Transmission Date: 20120403
  Serious: Yes (Disabling)
  Sender: FDA-Public Use
  Company Number: PT-ASTRAZENECA-2011SE62051

PATIENT
  Sex: Female

DRUGS (3)
  1. UNKNOWN FOR ANGINA PECTORIS [Concomitant]
     Indication: ANGINA PECTORIS
  2. UNKNOWN FOR HYPERTENSION [Concomitant]
     Indication: HYPERTENSION
  3. CRESTOR [Suspect]
     Route: 048

REACTIONS (3)
  - GAIT DISTURBANCE [None]
  - FATIGUE [None]
  - MUSCULAR WEAKNESS [None]
